FAERS Safety Report 6434252-3 (Version None)
Quarter: 2009Q4

REPORT INFORMATION
  Report Type: 
  Country: None (occurrence: None)
  Receive Date: 20091110
  Receipt Date: 20090722
  Transmission Date: 20100525
  Serious: No
  Sender: FDA-Public Use
  Company Number: US-ASTRAZENECA-2009SE10130

PATIENT
  Age: 85 Year
  Sex: Female

DRUGS (8)
  1. PRILOSEC OTC [Suspect]
     Indication: PROPHYLAXIS AGAINST GASTROINTESTINAL ULCER
     Dosage: 1 TABLET, 1 ONLY FOR 1 DAY
     Route: 048
     Dates: start: 20090721, end: 20090721
  2. PRILOSEC OTC [Suspect]
     Indication: ABDOMINAL DISTENSION
     Dosage: 1 TABLET, 1 ONLY FOR 1 DAY
     Route: 048
     Dates: start: 20090721, end: 20090721
  3. PRILOSEC OTC [Suspect]
  4. PRILOSEC OTC [Suspect]
  5. ANTIBIOTICS [Concomitant]
  6. ANTIHYPERTENSIVES [Concomitant]
  7. THYROID THERAPY [Concomitant]
  8. LORAZEPAM [Concomitant]

REACTIONS (3)
  - CHEST DISCOMFORT [None]
  - DYSPNOEA [None]
  - HEADACHE [None]
